FAERS Safety Report 20827016 (Version 2)
Quarter: 2022Q2

REPORT INFORMATION
  Report Type: Spontaneous
  Country: US (occurrence: US)
  Receive Date: 20220513
  Receipt Date: 20220521
  Transmission Date: 20220721
  Serious: No
  Sender: FDA-Public Use
  Company Number: US-LUPIN PHARMACEUTICALS INC.-2022-06771

PATIENT
  Age: 2 Month
  Sex: Male
  Weight: 6.349 kg

DRUGS (1)
  1. FAMOTIDINE [Suspect]
     Active Substance: FAMOTIDINE
     Indication: Gastrooesophageal reflux disease
     Dosage: UNK
     Route: 048
     Dates: start: 20220305

REACTIONS (1)
  - Dairy intolerance [Not Recovered/Not Resolved]

NARRATIVE: CASE EVENT DATE: 20220427
